FAERS Safety Report 16878776 (Version 4)
Quarter: 2019Q4

REPORT INFORMATION
  Report Type: Report from Study
  Country: CN (occurrence: CN)
  Receive Date: 20191002
  Receipt Date: 20191121
  Transmission Date: 20200122
  Serious: Yes (Life-Threatening, Other)
  Sender: FDA-Public Use
  Company Number: CN-JNJFOC-20190834640

PATIENT
  Age: 46 Year
  Sex: Female
  Weight: 64 kg

DRUGS (5)
  1. SIRTURO [Suspect]
     Active Substance: BEDAQUILINE FUMARATE
     Indication: TUBERCULOSIS
     Route: 048
     Dates: start: 20190605, end: 2019
  2. SIRTURO [Suspect]
     Active Substance: BEDAQUILINE FUMARATE
     Route: 048
     Dates: start: 2019
  3. CLOFAZIMINE [Suspect]
     Active Substance: CLOFAZIMINE
     Indication: TUBERCULOSIS
     Route: 065
  4. LINEZOLID. [Suspect]
     Active Substance: LINEZOLID
     Indication: TUBERCULOSIS
     Route: 065
  5. LINEZOLID. [Suspect]
     Active Substance: LINEZOLID

REACTIONS (3)
  - Electrocardiogram QT prolonged [Recovered/Resolved]
  - Neuropathy peripheral [Unknown]
  - Haemoglobin decreased [Recovering/Resolving]

NARRATIVE: CASE EVENT DATE: 20190827
